FAERS Safety Report 6494032-X (Version None)
Quarter: 2009Q4

REPORT INFORMATION
  Report Type: 
  Country: None (occurrence: None)
  Receive Date: 20091214
  Receipt Date: 20081211
  Transmission Date: 20100525
  Serious: No
  Sender: FDA-Public Use
  Company Number: US-BRISTOL-MYERS SQUIBB COMPANY-14441026

PATIENT
  Sex: Male

DRUGS (1)
  1. ABILIFY [Suspect]
     Dates: end: 20080101

REACTIONS (2)
  - DYSKINESIA [None]
  - GAIT DISTURBANCE [None]
